FAERS Safety Report 15356119 (Version 1)
Quarter: 2018Q3

REPORT INFORMATION
  Report Type: Spontaneous
  Country: UA (occurrence: UA)
  Receive Date: 20180906
  Receipt Date: 20180906
  Transmission Date: 20181010
  Serious: Yes (Life-Threatening, Hospitalization)
  Sender: FDA-Public Use
  Company Number: UA-PFIZER INC-2018359072

PATIENT
  Age: 50 Year
  Sex: Female

DRUGS (1)
  1. ELLEFORE [Suspect]
     Active Substance: DESVENLAFAXINE SUCCINATE
     Indication: DEPRESSION
     Dosage: 50 MG, DAILY

REACTIONS (3)
  - Depression [Unknown]
  - Suicide attempt [Unknown]
  - Condition aggravated [Unknown]
